FAERS Safety Report 5156289-7 (Version None)
Quarter: 2006Q4

REPORT INFORMATION
  Report Type: 
  Country: None (occurrence: None)
  Receive Date: 20061122
  Receipt Date: 20061106
  Transmission Date: 20070319
  Serious: Yes (Other)
  Sender: FDA-Public Use
  Company Number: US-GLAXOSMITHKLINE-A0626376A

PATIENT
  Age: 63 Year
  Sex: Female
  Weight: 65.9 kg

DRUGS (18)
  1. ADVAIR DISKUS 100/50 [Suspect]
     Indication: ASTHMA
     Route: 055
  2. ASCORBIC ACID [Concomitant]
     Dosage: 1000MG TWICE PER DAY
  3. FISH OIL [Concomitant]
  4. OSCAL [Concomitant]
     Dosage: 1000MG TWICE PER DAY
  5. VITAMIN E [Concomitant]
     Dosage: 400MG TWICE PER DAY
  6. PROBIOTIC [Concomitant]
     Indication: ANTIFUNGAL PROPHYLAXIS
  7. MULTI-VITAMIN [Concomitant]
  8. EVENING PRIMROSE OIL [Concomitant]
     Dosage: 800MG PER DAY
  9. SINGULAIR [Concomitant]
     Dosage: 10MG PER DAY
  10. PREMARIN [Concomitant]
     Dosage: 1.25MG PER DAY
  11. UNKNOWN MEDICATION [Concomitant]
  12. FEXOFENADINE [Concomitant]
     Dosage: 180MG PER DAY
  13. MAXAIR [Concomitant]
     Dosage: 14G AS REQUIRED
  14. FORADIL [Concomitant]
     Dosage: 12MCG AS REQUIRED
  15. SULFAMETHOXAZOLE + TRIMETHOPRIM [Concomitant]
  16. DUONEB [Concomitant]
     Dosage: 3ML AS REQUIRED
     Route: 055
  17. ASTELIN [Concomitant]
  18. DETROL [Concomitant]
     Indication: BLADDER OPERATION
     Dates: start: 20000101

REACTIONS (7)
  - DENTAL CARIES [None]
  - ENDODONTIC PROCEDURE [None]
  - JAW FRACTURE [None]
  - ORAL DISCOMFORT [None]
  - OSTEOLYSIS [None]
  - TOOTH ABSCESS [None]
  - TOOTH DISORDER [None]
